FAERS Safety Report 6146749-4 (Version None)
Quarter: 2009Q2

REPORT INFORMATION
  Report Type: 
  Country: None (occurrence: None)
  Receive Date: 20090403
  Receipt Date: 20090403
  Transmission Date: 20091009
  Serious: Yes (Other)
  Sender: FDA-Public Use
  Company Number: None

PATIENT
  Age: 20 Year
  Sex: Male
  Weight: 114.76 kg

DRUGS (1)
  1. DAYTRANA [Suspect]
     Indication: ATTENTION DEFICIT/HYPERACTIVITY DISORDER
     Dosage: 30MG ONCE DAILY X9 HOUR TRANSDERMAL
     Route: 062
     Dates: start: 20090331, end: 20090331

REACTIONS (4)
  - APPLICATION SITE ERYTHEMA [None]
  - BURNING SENSATION [None]
  - PAIN [None]
  - PRURITUS [None]
